FAERS Safety Report 18398473 (Version 1)
Quarter: 2020Q4

REPORT INFORMATION
  Report Type: Spontaneous
  Country: US (occurrence: US)
  Receive Date: 20201019
  Receipt Date: 20201019
  Transmission Date: 20210114
  Serious: Yes (Death)
  Sender: FDA-Public Use
  Company Number: None

PATIENT
  Age: 96 Year
  Sex: Male
  Weight: 84 kg

DRUGS (1)
  1. INV-REMDESIVIR (INV-REMDESIVIR 5MG/ML INJ, SOLN M) [Suspect]
     Active Substance: REMDESIVIR
     Indication: COVID-19
     Route: 042
     Dates: start: 20201005, end: 20201009

REACTIONS (2)
  - Thrombocytopenia [None]
  - Respiratory failure [None]

NARRATIVE: CASE EVENT DATE: 20201010
